FAERS Safety Report 12628238 (Version 1)
Quarter: 2016Q3

REPORT INFORMATION
  Report Type: Spontaneous
  Country: US (occurrence: US)
  Receive Date: 20160808
  Receipt Date: 20160808
  Transmission Date: 20161109
  Serious: No
  Sender: FDA-Public Use
  Company Number: US-BEH-2016072036

PATIENT
  Sex: Male
  Weight: 95.24 kg

DRUGS (29)
  1. CORN STARCH [Concomitant]
     Active Substance: STARCH, CORN
  2. HYDROXYZINE [Concomitant]
     Active Substance: HYDROXYZINE\HYDROXYZINE HYDROCHLORIDE
  3. ALPHA LIPOIC [Concomitant]
  4. DIASTAT                            /00017001/ [Concomitant]
  5. MAGNESIUM [Concomitant]
     Active Substance: MAGNESIUM
  6. NUTRIENTS NOS [Concomitant]
     Active Substance: UNSPECIFIED INGREDIENT
  7. HIZENTRA [Suspect]
     Active Substance: HUMAN IMMUNOGLOBULIN G
     Indication: IMMUNODEFICIENCY COMMON VARIABLE
     Dosage: 8 G, QW
     Route: 058
     Dates: start: 20151019
  8. VITAMIN D                          /00107901/ [Concomitant]
     Active Substance: ERGOCALCIFEROL
  9. COENZYME Q10 [Concomitant]
     Active Substance: UBIDECARENONE
  10. FOLIC ACID. [Concomitant]
     Active Substance: FOLIC ACID
  11. MIRAPEX [Concomitant]
     Active Substance: PRAMIPEXOLE DIHYDROCHLORIDE
  12. KEPPRA [Concomitant]
     Active Substance: LEVETIRACETAM
  13. LIDOCAINE. [Concomitant]
     Active Substance: LIDOCAINE
  14. PULMICORT TURBUHALER [Concomitant]
     Active Substance: BUDESONIDE
  15. MIRALAX [Concomitant]
     Active Substance: POLYETHYLENE GLYCOL 3350
  16. RIBOFLAVIN [Concomitant]
     Active Substance: RIBOFLAVIN
  17. VITAMIN B12 [Concomitant]
     Active Substance: CYANOCOBALAMIN
  18. DIPHENHYDRAMINE. [Concomitant]
     Active Substance: DIPHENHYDRAMINE
  19. EPIPEN [Concomitant]
     Active Substance: EPINEPHRINE
  20. PATANASE [Concomitant]
     Active Substance: OLOPATADINE HYDROCHLORIDE
  21. XOPENEX [Concomitant]
     Active Substance: LEVALBUTEROL HYDROCHLORIDE
  22. ZANTAC [Concomitant]
     Active Substance: RANITIDINE HYDROCHLORIDE
  23. SENOKOT [Concomitant]
     Active Substance: SENNOSIDES
  24. IBUPROFEN. [Concomitant]
     Active Substance: IBUPROFEN
  25. GENTAMICIN. [Concomitant]
     Active Substance: GENTAMICIN
  26. SODIUM CHLORIDE. [Concomitant]
     Active Substance: SODIUM CHLORIDE
  27. CREATINE [Concomitant]
     Active Substance: CREATINE
  28. CARNITOR [Concomitant]
     Active Substance: LEVOCARNITINE
  29. EMLA [Concomitant]
     Active Substance: LIDOCAINE\PRILOCAINE

REACTIONS (2)
  - Influenza [Unknown]
  - Candida infection [Unknown]
